FAERS Safety Report 25454210 (Version 1)
Quarter: 2025Q2

REPORT INFORMATION
  Report Type: Report from Study
  Country: CO (occurrence: CO)
  Receive Date: 20250619
  Receipt Date: 20250619
  Transmission Date: 20250717
  Serious: Yes (Other)
  Sender: ROCHE
  Company Number: CO-002147023-NVSC2025CO075199

PATIENT
  Age: 37 Year
  Sex: Male
  Weight: 96 kg

DRUGS (6)
  1. XOLAIR [Suspect]
     Active Substance: OMALIZUMAB
     Indication: Chronic spontaneous urticaria
     Dosage: 300 MG, QMO (FORM STRENGTH: 150 MG/ML)
     Route: 058
     Dates: start: 20250421
  2. XOLAIR [Suspect]
     Active Substance: OMALIZUMAB
     Route: 065
     Dates: end: 20250421
  3. XOLAIR [Suspect]
     Active Substance: OMALIZUMAB
     Dosage: 2 OF 150MG/ML (300MG/ ML) / 150MG/1 ML
     Route: 058
     Dates: end: 20250421
  4. CETIRIZINE HCL [Concomitant]
     Active Substance: CETIRIZINE HYDROCHLORIDE
     Indication: Chronic spontaneous urticaria
  5. DOVATO [Concomitant]
     Active Substance: DOLUTEGRAVIR SODIUM\LAMIVUDINE
     Indication: HIV infection
     Dosage: 50/300MG, EVERY 24 HOURS
  6. BILASTINE [Concomitant]
     Active Substance: BILASTINE
     Indication: Product used for unknown indication
     Route: 048

REACTIONS (14)
  - Hypersensitivity [Unknown]
  - Alopecia [Not Recovered/Not Resolved]
  - Peripheral swelling [Not Recovered/Not Resolved]
  - Erectile dysfunction [Unknown]
  - Emotional distress [Unknown]
  - Self esteem decreased [Unknown]
  - Social anxiety disorder [Unknown]
  - Insomnia [Unknown]
  - Panic attack [Unknown]
  - Anxiety [Unknown]
  - Fear [Unknown]
  - Depression [Unknown]
  - Injection site pain [Recovering/Resolving]
  - Mass [Unknown]

NARRATIVE: CASE EVENT DATE: 20250421
